FAERS Safety Report 20055538 (Version 26)
Quarter: 2025Q1

REPORT INFORMATION
  Report Type: Report from Study
  Country: CO (occurrence: CO)
  Receive Date: 20211110
  Receipt Date: 20250205
  Transmission Date: 20250409
  Serious: Yes (Hospitalization)
  Sender: TAKEDA
  Company Number: CO-TAKEDA-CO201944572

PATIENT
  Age: 23 Year
  Sex: Female
  Weight: 54 kg

DRUGS (8)
  1. ICATIBANT [Suspect]
     Active Substance: ICATIBANT ACETATE
     Indication: Hereditary angioedema
     Dosage: UNK UNK, Q6HR
     Dates: start: 20190309
  2. ICATIBANT [Suspect]
     Active Substance: ICATIBANT ACETATE
     Indication: Angioedema
  3. ICATIBANT [Suspect]
     Active Substance: ICATIBANT ACETATE
     Indication: Immune system disorder
  4. CALCIUM [Suspect]
     Active Substance: CALCIUM
     Indication: Product used for unknown indication
  5. FERROUS SULFATE [Suspect]
     Active Substance: FERROUS SULFATE
     Indication: Product used for unknown indication
  6. FOLIC ACID [Suspect]
     Active Substance: FOLIC ACID
     Indication: Product used for unknown indication
  7. VITAMINS [Concomitant]
     Active Substance: VITAMINS
  8. BERINERT [Concomitant]
     Active Substance: HUMAN C1-ESTERASE INHIBITOR
     Indication: Laryngeal disorder

REACTIONS (21)
  - Urinary tract infection [Recovering/Resolving]
  - Breast feeding [Unknown]
  - Stress [Not Recovered/Not Resolved]
  - Throat irritation [Recovered/Resolved]
  - Inflammation [Recovered/Resolved]
  - Weight decreased [Unknown]
  - Hereditary angioedema [Recovered/Resolved]
  - Pregnancy [Recovered/Resolved]
  - Expired product administered [Unknown]
  - Product use issue [Unknown]
  - Weight increased [Unknown]
  - Back pain [Recovering/Resolving]
  - Discouragement [Recovering/Resolving]
  - Malaise [Recovering/Resolving]
  - Nervous system disorder [Not Recovered/Not Resolved]
  - Anxiety [Not Recovered/Not Resolved]
  - Hyperchlorhydria [Unknown]
  - Gastritis [Unknown]
  - Product dose omission issue [Unknown]
  - Product use in unapproved indication [Unknown]
  - Pyrexia [Recovering/Resolving]

NARRATIVE: CASE EVENT DATE: 20210730
